FAERS Safety Report 13273083 (Version 1)
Quarter: 2017Q1

REPORT INFORMATION
  Report Type: Spontaneous
  Country: US (occurrence: US)
  Receive Date: 20170227
  Receipt Date: 20170227
  Transmission Date: 20170428
  Serious: No
  Sender: FDA-Public Use
  Company Number: None

PATIENT
  Age: 37 Year
  Sex: Female
  Weight: 58.11 kg

DRUGS (3)
  1. PROBIOTIC [Concomitant]
     Active Substance: PROBIOTICS NOS
  2. MIRENA [Suspect]
     Active Substance: LEVONORGESTREL
  3. POST NATAL VITAMIN [Concomitant]

REACTIONS (1)
  - Device dislocation [None]

NARRATIVE: CASE EVENT DATE: 20161219
